FAERS Safety Report 8614681-X (Version None)
Quarter: 2012Q3

REPORT INFORMATION
  Report Type: 
  Country: None (occurrence: None)
  Receive Date: 20120809
  Receipt Date: 20120724
  Transmission Date: 20120928
  Serious: Yes (Other)
  Sender: FDA-Public Use
  Company Number: RISP20120008

PATIENT
  Age: 39 Year
  Sex: Female

DRUGS (6)
  1. LORAZEPAM [Concomitant]
  2. RISPERIDONE [Suspect]
     Indication: SCHIZOAFFECTIVE DISORDER
     Dosage: 4 MG
  3. HALOPERIDOL [Suspect]
     Indication: SCHIZOAFFECTIVE DISORDER
     Dosage: 5 MG, 7.5 MG
  4. VENLAFAXINE (VENLAFAXINE) [Concomitant]
  5. MIRTAZAPINE [Concomitant]
  6. ARIPIPRAZOLE [Suspect]
     Indication: SCHIZOAFFECTIVE DISORDER
     Dosage: 5 MG, 10 MG, 15 MG, 20 MG, 30 MG

REACTIONS (8)
  - ANXIETY [None]
  - GALACTORRHOEA [None]
  - DISORIENTATION [None]
  - CONDITION AGGRAVATED [None]
  - DRUG LEVEL INCREASED [None]
  - PSYCHOTIC DISORDER [None]
  - SEDATION [None]
  - ABNORMAL BEHAVIOUR [None]
